FAERS Safety Report 9158080 (Version 5)
Quarter: 2013Q4

REPORT INFORMATION
  Report Type: Report from Study
  Country: AU (occurrence: AU)
  Receive Date: 20130312
  Receipt Date: 20131029
  Transmission Date: 20140711
  Serious: Yes (Death, Life-Threatening, Hospitalization)
  Sender: FDA-Public Use
  Company Number: AU-ROCHE-1199769

PATIENT
  Age: 70 Year
  Sex: Female

DRUGS (3)
  1. ACTEMRA [Suspect]
     Indication: RHEUMATOID ARTHRITIS
     Dosage: MOST RECENT DOSE 07/FEB/2013
     Route: 042
     Dates: start: 20120626
  2. ACTEMRA [Suspect]
     Route: 042
  3. PARACETAMOL [Concomitant]

REACTIONS (10)
  - Multi-organ failure [Fatal]
  - Sepsis [Fatal]
  - Ischaemic hepatitis [Fatal]
  - Immunosuppression [Fatal]
  - Renal failure acute [Fatal]
  - Nausea [Unknown]
  - Decreased appetite [Unknown]
  - Urinary tract infection [Unknown]
  - Pneumonia [Unknown]
  - Oliguria [Unknown]
